FAERS Safety Report 24114929 (Version 1)
Quarter: 2024Q3

REPORT INFORMATION
  Report Type: Spontaneous
  Country: US (occurrence: US)
  Receive Date: 20240721
  Receipt Date: 20240721
  Transmission Date: 20241017
  Serious: No
  Sender: NOVO NORDISK
  Company Number: US-NOVOPROD-1157162

PATIENT
  Age: 54 Year
  Sex: Male

DRUGS (1)
  1. WEGOVY [Suspect]
     Active Substance: SEMAGLUTIDE
     Indication: Weight control
     Dosage: UNK
     Route: 058
     Dates: start: 2022

REACTIONS (5)
  - Fibromyalgia [Unknown]
  - Intervertebral disc disorder [Unknown]
  - Arthropathy [Unknown]
  - General physical health deterioration [Unknown]
  - Pain [Unknown]
